FAERS Safety Report 19509156 (Version 1)
Quarter: 2021Q3

REPORT INFORMATION
  Report Type: Spontaneous
  Country: FR (occurrence: FR)
  Receive Date: 20210709
  Receipt Date: 20210709
  Transmission Date: 20211014
  Serious: Yes (Other)
  Sender: FDA-Public Use
  Company Number: FR-APOTEX-2021AP015657

PATIENT
  Sex: Male

DRUGS (1)
  1. DEROXAT [Suspect]
     Active Substance: PAROXETINE HYDROCHLORIDE
     Indication: PRODUCT USED FOR UNKNOWN INDICATION
     Dosage: UNK UNK, QD (1/2 TABLET OF 20MG OR 10MG PER DAY)
     Route: 048

REACTIONS (4)
  - Myalgia [Unknown]
  - Glaucoma [Unknown]
  - Arthralgia [Unknown]
  - Neck pain [Unknown]
